FAERS Safety Report 9891057 (Version 1)
Quarter: 2014Q1

REPORT INFORMATION
  Report Type: Spontaneous
  Country: US (occurrence: None)
  Receive Date: 20140211
  Receipt Date: 20140211
  Transmission Date: 20141002
  Serious: Yes (Other)
  Sender: FDA-Public Use
  Company Number: None

PATIENT
  Age: 43 Year
  Sex: Female

DRUGS (2)
  1. CETIRIZINE HCL [Suspect]
     Indication: SINUS DISORDER
     Dates: start: 20120101, end: 20140210
  2. CETIRIZINE HCL [Suspect]
     Indication: HYPERSENSITIVITY
     Dates: start: 20120101, end: 20140210

REACTIONS (3)
  - Pruritus [None]
  - Rash [None]
  - Urticaria [None]
